FAERS Safety Report 18305958 (Version 1)
Quarter: 2020Q3

REPORT INFORMATION
  Report Type: Spontaneous
  Country: US (occurrence: US)
  Receive Date: 20200923
  Receipt Date: 20200923
  Transmission Date: 20201103
  Serious: Yes (Hospitalization)
  Sender: FDA-Public Use
  Company Number: None

PATIENT
  Age: 54 Year
  Sex: Male

DRUGS (3)
  1. ZYRTEC ALLGY [Concomitant]
  2. TYLENOL [Concomitant]
     Active Substance: ACETAMINOPHEN
  3. HUMIRA [Suspect]
     Active Substance: ADALIMUMAB
     Indication: PRODUCT USED FOR UNKNOWN INDICATION
     Route: 058
     Dates: start: 20190315

REACTIONS (5)
  - Staphylococcal infection [None]
  - SARS-CoV-2 test positive [None]
  - Therapy interrupted [None]
  - Pneumonia [None]
  - Pain [None]

NARRATIVE: CASE EVENT DATE: 20200810
